FAERS Safety Report 17573589 (Version 1)
Quarter: 2020Q1

REPORT INFORMATION
  Report Type: Spontaneous
  Country: US (occurrence: US)
  Receive Date: 20200323
  Receipt Date: 20200323
  Transmission Date: 20200409
  Serious: Yes (Hospitalization)
  Sender: FDA-Public Use
  Company Number: US-RADIUS HEALTH INC.-2020US001089

PATIENT
  Age: 65 Year
  Sex: Female

DRUGS (1)
  1. TYMLOS [Suspect]
     Active Substance: ABALOPARATIDE
     Indication: OSTEOPOROSIS POSTMENOPAUSAL
     Dosage: 80 MCG, QD
     Route: 058
     Dates: start: 20191018

REACTIONS (6)
  - Non-cardiac chest pain [Not Recovered/Not Resolved]
  - Pancreatitis [Recovered/Resolved]
  - Influenza [Recovered/Resolved]
  - Sinusitis [Recovering/Resolving]
  - Inflammation [Recovered/Resolved]
  - Bite [Recovered/Resolved]

NARRATIVE: CASE EVENT DATE: 201910
